FAERS Safety Report 7667197-1 (Version None)
Quarter: 2011Q3

REPORT INFORMATION
  Report Type: 
  Country: None (occurrence: None)
  Receive Date: 20110806
  Receipt Date: 20110510
  Transmission Date: 20111222
  Serious: No
  Sender: FDA-Public Use
  Company Number: US-ABBOTT-11P-163-0725122-00

PATIENT
  Sex: Male
  Weight: 108.96 kg

DRUGS (9)
  1. NIASPAN [Suspect]
     Indication: BLOOD TRIGLYCERIDES INCREASED
     Dosage: 2000MG DAILY
     Dates: start: 20100101
  2. COQ10 [Concomitant]
     Indication: SUPPLEMENTATION THERAPY
  3. FISH OIL [Concomitant]
     Indication: SUPPLEMENTATION THERAPY
  4. LABETALOL HCL [Concomitant]
     Indication: HYPERTENSION
  5. NIASPAN [Suspect]
     Dosage: 1000MG DAILY
     Dates: start: 20090101, end: 20100101
  6. NIASPAN [Suspect]
     Dates: start: 20090101, end: 20090101
  7. AMLODIPINE [Concomitant]
     Indication: HYPERTENSION
  8. ISOSORBIDE DINITRATE [Concomitant]
     Indication: HYPERTENSION
  9. GLIPIZIDE [Concomitant]
     Indication: DIABETES MELLITUS

REACTIONS (2)
  - ABDOMINAL PAIN UPPER [None]
  - OROPHARYNGEAL PAIN [None]
